FAERS Safety Report 20724042 (Version 1)
Quarter: 2022Q2

REPORT INFORMATION
  Report Type: Report from Study
  Country: AR (occurrence: AR)
  Receive Date: 20220419
  Receipt Date: 20220419
  Transmission Date: 20220721
  Serious: Yes (Hospitalization)
  Sender: FDA-Public Use
  Company Number: AR-NOVARTISPH-NVSC2022AR089604

PATIENT
  Sex: Female

DRUGS (1)
  1. DIOVAN [Suspect]
     Active Substance: VALSARTAN
     Indication: Hypertension
     Dosage: 160/12.5 MG, QD
     Route: 065
     Dates: start: 2005

REACTIONS (4)
  - Influenza [Unknown]
  - Pneumonia [Unknown]
  - Eating disorder [Unknown]
  - Dysphagia [Unknown]
